FAERS Safety Report 7941703-1 (Version None)
Quarter: 2011Q4

REPORT INFORMATION
  Report Type: 
  Country: None (occurrence: None)
  Receive Date: 20111128
  Receipt Date: 20111128
  Transmission Date: 20120403
  Serious: Yes (Other)
  Sender: FDA-Public Use
  Company Number: None

PATIENT
  Age: 43 Year
  Sex: Female
  Weight: 67.585 kg

DRUGS (5)
  1. ATENOLOL [Concomitant]
     Indication: DRUG WITHDRAWAL SYNDROME
  2. SUBOXONE [Suspect]
     Indication: DRUG DEPENDENCE
     Dosage: 1/2 FILM
     Route: 060
     Dates: start: 20111007, end: 20111125
  3. ZOLOFT [Concomitant]
  4. XANAX [Concomitant]
  5. CRESTOR [Concomitant]

REACTIONS (5)
  - ARTHRALGIA [None]
  - FLUID RETENTION [None]
  - JOINT SWELLING [None]
  - WEIGHT INCREASED [None]
  - OEDEMA PERIPHERAL [None]
